FAERS Safety Report 7234175-6 (Version None)
Quarter: 2011Q1

REPORT INFORMATION
  Report Type: 
  Country: None (occurrence: None)
  Receive Date: 20110107
  Receipt Date: 20101230
  Transmission Date: 20110831
  Serious: No
  Sender: FDA-Public Use
  Company Number: US-1183933

PATIENT
  Age: 42 Year
  Sex: Female

DRUGS (1)
  1. NEOMYCIN AND POLYMXIN B SULFATES AND HYDROCORTISONE [Suspect]
     Indication: EYE PAIN
     Dosage: OPTHALMIC
     Route: 047
     Dates: start: 20101028, end: 20101028

REACTIONS (6)
  - EYE IRRITATION [None]
  - OFF LABEL USE [None]
  - DRUG DISPENSING ERROR [None]
  - EYE PAIN [None]
  - WRONG DRUG ADMINISTERED [None]
  - OCULAR HYPERAEMIA [None]
